FAERS Safety Report 7237691-6 (Version None)
Quarter: 2011Q1

REPORT INFORMATION
  Report Type: 
  Country: None (occurrence: None)
  Receive Date: 20110121
  Receipt Date: 20110110
  Transmission Date: 20110831
  Serious: Yes (Hospitalization, Other)
  Sender: FDA-Public Use
  Company Number: US-ELI_LILLY_AND_COMPANY-US201011000654

PATIENT
  Sex: Female

DRUGS (11)
  1. LIPITOR [Concomitant]
  2. TRIAMTERENE [Concomitant]
  3. SOTALOL [Concomitant]
  4. ASPIRIN [Concomitant]
  5. ZETIA [Concomitant]
  6. FORTEO [Suspect]
     Indication: OSTEOPOROSIS
     Dosage: 20 UG, DAILY (1/D)
     Dates: end: 20100921
  7. LEVOTHYROXINE [Concomitant]
  8. LEXAPRO [Concomitant]
  9. DYAZIDE [Concomitant]
  10. FORTEO [Suspect]
     Dosage: 20 UG, DAILY (1/D)
     Dates: start: 20101220
  11. DIOVAN [Concomitant]

REACTIONS (2)
  - HIP FRACTURE [None]
  - FALL [None]
